FAERS Safety Report 15618424 (Version 2)
Quarter: 2018Q4

REPORT INFORMATION
  Report Type: Spontaneous
  Country: DK (occurrence: DK)
  Receive Date: 20181114
  Receipt Date: 20181210
  Transmission Date: 20190205
  Serious: Yes (Other)
  Sender: FDA-Public Use
  Company Number: DK-OTSUKA-2018_035981

PATIENT
  Age: 21 Year
  Sex: Male

DRUGS (2)
  1. SEROQUEL XR [Suspect]
     Active Substance: QUETIAPINE FUMARATE
     Indication: SCHIZOPHRENIA
     Dosage: 500 MG (BOTH 200 MG AND 300 MG)
     Route: 048
     Dates: start: 20170306
  2. ABILIFY [Suspect]
     Active Substance: ARIPIPRAZOLE
     Indication: SCHIZOPHRENIA
     Dosage: 50 MG, QD (BOTH 5 MG AND 15 MG)
     Route: 048
     Dates: start: 2014, end: 20170306

REACTIONS (7)
  - Seizure [Recovered/Resolved]
  - Overdose [Unknown]
  - Eye movement disorder [Recovered/Resolved]
  - Dystonia [Recovered/Resolved]
  - Mental disorder [Recovered/Resolved]
  - Vertigo [Recovered/Resolved]
  - Tremor [Recovered/Resolved]

NARRATIVE: CASE EVENT DATE: 2014
